FAERS Safety Report 5677487-X (Version None)
Quarter: 2008Q1

REPORT INFORMATION
  Report Type: 
  Country: None (occurrence: None)
  Receive Date: 20080324
  Receipt Date: 20080312
  Transmission Date: 20080703
  Serious: Yes (Life-Threatening, Hospitalization, Other)
  Sender: FDA-Public Use
  Company Number: ZA-PFIZER INC-2008023400

PATIENT
  Age: 68 Year
  Sex: Female

DRUGS (4)
  1. NEURONTIN [Suspect]
     Route: 048
  2. LYRICA [Suspect]
     Route: 048
     Dates: start: 20080301, end: 20080319
  3. FUROSEMIDE [Concomitant]
  4. ALL OTHER THERAPEUTIC PRODUCTS [Concomitant]

REACTIONS (3)
  - COMA [None]
  - HEPATIC ENCEPHALOPATHY [None]
  - LABORATORY TEST ABNORMAL [None]
